FAERS Safety Report 5071599-X (Version None)
Quarter: 2006Q3

REPORT INFORMATION
  Report Type: 
  Country: None (occurrence: None)
  Receive Date: 20060801
  Receipt Date: 20060713
  Transmission Date: 20061208
  Serious: Yes (Hospitalization)
  Sender: FDA-Public Use
  Company Number: US200602003605

PATIENT
  Age: 64 Year
  Sex: Female
  Weight: 63 kg

DRUGS (8)
  1. FORTEO [Suspect]
     Indication: OSTEOPOROSIS
     Dosage: 20 UG, DAILY (1/D)
     Dates: start: 20050217
  2. FORTEO [Concomitant]
  3. CELEBREX [Concomitant]
  4. SKELAXIN [Concomitant]
  5. NTG (GLYCERYL TRINITRATE) [Concomitant]
  6. ELAVIL [Concomitant]
  7. FOSAMAX /ITA/ (ALENDRONATE SODIUM) [Concomitant]
  8. EVISTA [Concomitant]

REACTIONS (5)
  - BURNING SENSATION [None]
  - CONDITION AGGRAVATED [None]
  - GASTROOESOPHAGEAL REFLUX DISEASE [None]
  - GLOSSODYNIA [None]
  - HIATUS HERNIA [None]
